FAERS Safety Report 5275793-4 (Version None)
Quarter: 2007Q1

REPORT INFORMATION
  Report Type: 
  Country: None (occurrence: None)
  Receive Date: 20070326
  Receipt Date: 20070316
  Transmission Date: 20070707
  Serious: Yes (Hospitalization)
  Sender: FDA-Public Use
  Company Number: FR-GLAXOSMITHKLINE-B0462948A

PATIENT
  Age: 94 Year
  Sex: Female

DRUGS (6)
  1. AUGMENTIN '125' [Suspect]
     Indication: BRONCHITIS
     Route: 048
     Dates: start: 20070201
  2. SECTRAL [Concomitant]
  3. VASTAREL [Concomitant]
  4. TRINIPATCH [Concomitant]
     Route: 062
  5. NEXIUM [Concomitant]
  6. PLAVIX [Concomitant]

REACTIONS (8)
  - CLOSTRIDIAL INFECTION [None]
  - DIARRHOEA [None]
  - FAECES DISCOLOURED [None]
  - FLATULENCE [None]
  - INFLAMMATION [None]
  - LEUKOCYTOSIS [None]
  - MELAENA [None]
  - PYREXIA [None]
